FAERS Safety Report 18484204 (Version 1)
Quarter: 2020Q4

REPORT INFORMATION
  Report Type: Spontaneous
  Country: US (occurrence: US)
  Receive Date: 20201109
  Receipt Date: 20201109
  Transmission Date: 20210114
  Serious: No
  Sender: FDA-Public Use
  Company Number: US-PURDUE PHARMA-USA-2020-0167481

PATIENT

DRUGS (1)
  1. OXYCODONE HCL TABLETS (RHODES 91-490) [Suspect]
     Active Substance: OXYCODONE HYDROCHLORIDE
     Indication: PAIN
     Dosage: 10 MG, UNK
     Route: 065

REACTIONS (4)
  - Withdrawal syndrome [Unknown]
  - Aggression [Unknown]
  - Frustration tolerance decreased [Unknown]
  - Breakthrough pain [Unknown]
